FAERS Safety Report 13533338 (Version 2)
Quarter: 2017Q2

REPORT INFORMATION
  Report Type: Spontaneous
  Country: BR (occurrence: BR)
  Receive Date: 20170510
  Receipt Date: 20170619
  Transmission Date: 20170830
  Serious: Yes (Other)
  Sender: FDA-Public Use
  Company Number: BR-ELI_LILLY_AND_COMPANY-BR201705002212

PATIENT
  Sex: Female

DRUGS (1)
  1. FORTEO [Suspect]
     Active Substance: TERIPARATIDE
     Indication: OSTEOPOROSIS
     Dosage: UNK, UNKNOWN
     Route: 058

REACTIONS (8)
  - Back pain [Unknown]
  - Fall [Unknown]
  - Osteoporosis [Unknown]
  - Spinal pain [Unknown]
  - Pathological fracture [Unknown]
  - Pain in extremity [Unknown]
  - Gait disturbance [Unknown]
  - Drug dose omission [Unknown]

NARRATIVE: CASE EVENT DATE: 201702
